FAERS Safety Report 15662371 (Version 3)
Quarter: 2019Q1

REPORT INFORMATION
  Report Type: Spontaneous
  Country: US (occurrence: US)
  Receive Date: 20181127
  Receipt Date: 20190114
  Transmission Date: 20190417
  Serious: Yes (Other)
  Sender: FDA-Public Use
  Company Number: US-GILEAD-2018-0376475

PATIENT
  Age: 70 Year
  Sex: Male

DRUGS (2)
  1. NEVIRAPINE. [Concomitant]
     Active Substance: NEVIRAPINE
     Dosage: UNK
     Dates: start: 2016
  2. EMTRICITABINE/TENOFOVIR ALAFENAMIDE [Suspect]
     Active Substance: EMTRICITABINE\TENOFOVIR
     Indication: PRODUCT USED FOR UNKNOWN INDICATION
     Dosage: UNK
     Route: 065
     Dates: start: 2016

REACTIONS (4)
  - Diabetes mellitus [Unknown]
  - Blood glucose increased [Unknown]
  - Urine phosphorus abnormal [Unknown]
  - Glycosuria [Recovered/Resolved]

NARRATIVE: CASE EVENT DATE: 201808
